FAERS Safety Report 5786699-6 (Version None)
Quarter: 2008Q2

REPORT INFORMATION
  Report Type: 
  Country: None (occurrence: None)
  Receive Date: 20080624
  Receipt Date: 20080610
  Transmission Date: 20081010
  Serious: Yes (Hospitalization)
  Sender: FDA-Public Use
  Company Number: GR-GENENTECH-263154

PATIENT
  Age: 38 Year
  Sex: Female

DRUGS (4)
  1. RITUXAN [Suspect]
     Indication: THROMBOTIC THROMBOCYTOPENIC PURPURA
     Dates: start: 20080515, end: 20080520
  2. CONCOMITANT DRUG [Concomitant]
     Indication: DRUG USE FOR UNKNOWN INDICATION
  3. CORTISONE [Concomitant]
     Indication: DRUG USE FOR UNKNOWN INDICATION
  4. ANTIBIOTIC (UNK INGREDIENTS) [Concomitant]
     Indication: DRUG USE FOR UNKNOWN INDICATION

REACTIONS (1)
  - PULMONARY EMBOLISM [None]
